FAERS Safety Report 9177168 (Version 1)
Quarter: 2013Q1

REPORT INFORMATION
  Report Type: Spontaneous
  Country: JP (occurrence: None)
  Receive Date: 20130319
  Receipt Date: 20130319
  Transmission Date: 20140127
  Serious: Yes (Hospitalization)
  Sender: FDA-Public Use
  Company Number: FK201300801

PATIENT
  Age: 71 Year
  Sex: Male

DRUGS (4)
  1. CARBOPLATIN (MANUFACTURER UNKNOWN)(CARBOPLATIN)(CARBOPLATIN) [Suspect]
     Indication: NON-SMALL CELL LUNG CANCER STAGE IV
  2. PACLITAXEL (MANUFACTURER UNKNOWN)(PACLITAXEL)(PACLITAXEL) [Suspect]
     Indication: NON-SMALL CELL LUNG CANCER STAGE IV
  3. MORPHINE (MANUFACTURER UNKNOWN) (MORPHINE) (MORPHINE) [Suspect]
     Indication: BONE PAIN
  4. ZOLEDRONIC ACID (ZOLEDRONIC ACID) [Concomitant]

REACTIONS (5)
  - Constipation [None]
  - Abdominal distension [None]
  - Abdominal pain upper [None]
  - Blood alkaline phosphatase increased [None]
  - Portal venous gas [None]
